FAERS Safety Report 5870703-0 (Version None)
Quarter: 2008Q3

REPORT INFORMATION
  Report Type: 
  Country: None (occurrence: None)
  Receive Date: 20080904
  Receipt Date: 20080904
  Transmission Date: 20090109
  Serious: Yes (Hospitalization, Disabling)
  Sender: FDA-Public Use
  Company Number: PHEH1996US09414

PATIENT
  Sex: Female
  Weight: 56 kg

DRUGS (6)
  1. SANDIMMUNE [Suspect]
     Route: 048
     Dates: start: 19950127, end: 19960109
  2. NIFEDIPINE [Concomitant]
  3. CAPTOPRIL [Concomitant]
  4. PREDNISONE [Concomitant]
  5. AZATHIOPRINE [Concomitant]
  6. VANCOMYCIN HYDROCHLORIDE [Concomitant]

REACTIONS (7)
  - CEREBROVASCULAR DISORDER [None]
  - DISTURBANCE IN ATTENTION [None]
  - DYSPHAGIA [None]
  - HAEMORRHAGE INTRACRANIAL [None]
  - HEMIPARESIS [None]
  - HYPERTENSION [None]
  - URINARY TRACT INFECTION [None]
